FAERS Safety Report 7092913-X (Version None)
Quarter: 2010Q4

REPORT INFORMATION
  Report Type: 
  Country: None (occurrence: None)
  Receive Date: 20101110
  Receipt Date: 20101103
  Transmission Date: 20110411
  Serious: No
  Sender: FDA-Public Use
  Company Number: US-PFIZER INC-2010140797

PATIENT
  Sex: Female

DRUGS (2)
  1. CHLORPROPAMIDE [Suspect]
  2. AMARYL [Concomitant]

REACTIONS (5)
  - DRUG INEFFECTIVE [None]
  - NAUSEA [None]
  - RASH GENERALISED [None]
  - URTICARIA [None]
  - VOMITING [None]
